FAERS Safety Report 16138189 (Version 4)
Quarter: 2020Q3

REPORT INFORMATION
  Report Type: Report from Study
  Country: CN (occurrence: CN)
  Receive Date: 20190401
  Receipt Date: 20200810
  Transmission Date: 20201102
  Serious: Yes (Hospitalization)
  Sender: FDA-Public Use
  Company Number: CN-ROCHE-2286427

PATIENT
  Age: 68 Year
  Sex: Female
  Weight: 63 kg

DRUGS (10)
  1. NIFEDIPINE SUSTAINED RELEASE [Concomitant]
     Indication: HYPERTENSION
     Dates: start: 20170524
  2. PERTUZUMAB. [Suspect]
     Active Substance: PERTUZUMAB
     Indication: BREAST CANCER METASTATIC
     Dosage: DOSE: 420 MG/14 ML?DATE OF MOST RECENT DOSE OF PERTUZUMAB PRIOR TO SAE ONSET: 22/FEB/2019
     Route: 042
     Dates: start: 20170627
  3. DOCETAXEL. [Suspect]
     Active Substance: DOCETAXEL
     Indication: BREAST CANCER METASTATIC
     Dosage: DATE OF MOST RECENT DOSE OF DOCETAXEL PRIOR TO SAE ONSET: 13/DEC/2017: 120 MG?75 MILLIGRAMS PER SQUA
     Route: 042
     Dates: start: 20170627
  4. LEVOCARNITINE. [Concomitant]
     Active Substance: LEVOCARNITINE
     Dates: start: 20190222, end: 20190222
  5. ZOLEDRONIC ACID [Concomitant]
     Active Substance: ZOLEDRONIC ACID
     Dates: start: 20190222, end: 20190222
  6. TRASTUZUMAB. [Suspect]
     Active Substance: TRASTUZUMAB
     Indication: BREAST CANCER METASTATIC
     Dosage: DATE OF MOST RECENT DOSE OF TRASTUZUMAB PRIOR TO SAE ONSET: 22/FEB/2019: 378 MG?8 MG/KG Q3W ON DAY 2
     Route: 042
     Dates: start: 20170627
  7. PANTOPRAZOLE [Concomitant]
     Active Substance: PANTOPRAZOLE
     Dates: start: 20190222, end: 20190222
  8. DIPHENHYDRAMINE. [Concomitant]
     Active Substance: DIPHENHYDRAMINE
     Dates: start: 20190222, end: 20190222
  9. DIISOPROPYLAMINE DICHLOROACETATE [Concomitant]
     Dates: start: 20190222, end: 20190222
  10. CEFEPIME [Concomitant]
     Active Substance: CEFEPIME HYDROCHLORIDE

REACTIONS (1)
  - Soft tissue infection [Not Recovered/Not Resolved]

NARRATIVE: CASE EVENT DATE: 20190314
